FAERS Safety Report 25217306 (Version 1)
Quarter: 2025Q2

REPORT INFORMATION
  Report Type: Other
  Country: TR (occurrence: None)
  Receive Date: 20250420
  Receipt Date: 20250420
  Transmission Date: 20250716
  Serious: Yes (Other)
  Sender: SQUARE PHARMACEUTICALS
  Company Number: TR-Square Pharmaceuticals PLC-000064

PATIENT
  Age: 16 Year
  Sex: Male
  Weight: 78 kg

DRUGS (1)
  1. ARIPIPRAZOLE [Suspect]
     Active Substance: ARIPIPRAZOLE
     Indication: Attention deficit hyperactivity disorder

REACTIONS (1)
  - Hyperaldosteronism [Recovered/Resolved]
